FAERS Safety Report 5987490-8 (Version None)
Quarter: 2008Q4

REPORT INFORMATION
  Report Type: 
  Country: None (occurrence: None)
  Receive Date: 20081209
  Receipt Date: 20081127
  Transmission Date: 20090506
  Serious: Yes (Death, Hospitalization)
  Sender: FDA-Public Use
  Company Number: GB-TEVA-181478ISR

PATIENT
  Age: 56 Year
  Sex: Female
  Weight: 65 kg

DRUGS (5)
  1. DOXORUBICIN [Suspect]
     Indication: BREAST CANCER
     Dates: end: 20081028
  2. DOCETAXEL [Suspect]
     Indication: BREAST CANCER
     Dates: end: 20081028
  3. DOCETAXEL [Suspect]
  4. CYCLOPHOSPHAMIDE [Suspect]
     Indication: BREAST CANCER
     Dates: end: 20081028
  5. CYCLOPHOSPHAMIDE [Suspect]

REACTIONS (1)
  - INTERSTITIAL LUNG DISEASE [None]
